FAERS Safety Report 14733655 (Version 1)
Quarter: 2018Q2

REPORT INFORMATION
  Report Type: Spontaneous
  Country: DK (occurrence: DK)
  Receive Date: 20180409
  Receipt Date: 20180409
  Transmission Date: 20180711
  Serious: Yes (Hospitalization)
  Sender: FDA-Public Use
  Company Number: DK-TAIHO ONCOLOGY INC-JPTT180283

PATIENT
  Age: 75 Year
  Sex: Male
  Weight: 76.4 kg

DRUGS (1)
  1. LONSURF [Suspect]
     Active Substance: TIPIRACIL HYDROCHLORIDE\TRIFLURIDINE
     Indication: COLORECTAL CANCER METASTATIC
     Dosage: 65 (UNK MG/M2), ON DAY 1, 8 AND 15 OF EACH 28 DAYS CYCLE
     Route: 048
     Dates: start: 20171205, end: 20171217

REACTIONS (1)
  - Constipation [Recovered/Resolved]

NARRATIVE: CASE EVENT DATE: 20171230
